FAERS Safety Report 9815624 (Version 2)
Quarter: 2014Q1

REPORT INFORMATION
  Report Type: Spontaneous
  Country: US (occurrence: US)
  Receive Date: 20140114
  Receipt Date: 20140325
  Transmission Date: 20141002
  Serious: No
  Sender: FDA-Public Use
  Company Number: US-009507513-1312USA011708

PATIENT
  Sex: Male
  Weight: 77.98 kg

DRUGS (1)
  1. MIRALAX [Suspect]
     Indication: CONSTIPATION
     Dosage: 17 G, BID
     Route: 048
     Dates: start: 2011

REACTIONS (6)
  - Overdose [Unknown]
  - Dysgeusia [Unknown]
  - Incorrect drug administration duration [Unknown]
  - Drug administered to patient of inappropriate age [Unknown]
  - Off label use [Unknown]
  - Product odour abnormal [Unknown]
